FAERS Safety Report 9436908 (Version 2)
Quarter: 2013Q3

REPORT INFORMATION
  Report Type: Spontaneous
  Country: US (occurrence: US)
  Receive Date: 20130802
  Receipt Date: 20130823
  Transmission Date: 20140515
  Serious: No
  Sender: FDA-Public Use
  Company Number: US-PFIZER INC-2013224202

PATIENT
  Age: 55 Year
  Sex: Female

DRUGS (3)
  1. ZOLOFT [Suspect]
     Indication: DEPRESSION
     Dosage: 100 MG, QD
     Route: 048
  2. AMPYRA [Suspect]
     Dosage: 10 MG, EVERY 12 HOURS
     Dates: start: 20120430, end: 20130617
  3. AUBAGIO [Suspect]
     Indication: MULTIPLE SCLEROSIS
     Dosage: 14 MG, QD
     Route: 048
     Dates: start: 20130301

REACTIONS (1)
  - Arthralgia [Recovered/Resolved]
